FAERS Safety Report 6099706-0 (Version None)
Quarter: 2009Q1

REPORT INFORMATION
  Report Type: 
  Country: None (occurrence: None)
  Receive Date: 20090303
  Receipt Date: 20090224
  Transmission Date: 20090719
  Serious: Yes (Hospitalization)
  Sender: FDA-Public Use
  Company Number: US-AMGEN-QUU335452

PATIENT
  Sex: Female

DRUGS (1)
  1. ENBREL [Suspect]
     Indication: PSORIATIC ARTHROPATHY
     Route: 058
     Dates: start: 20080815

REACTIONS (7)
  - CELLULITIS [None]
  - COUGH [None]
  - INJECTION SITE IRRITATION [None]
  - MENISCUS LESION [None]
  - NASOPHARYNGITIS [None]
  - PSORIATIC ARTHROPATHY [None]
  - RESPIRATORY TRACT CONGESTION [None]
